FAERS Safety Report 8228554-8 (Version None)
Quarter: 2012Q1

REPORT INFORMATION
  Report Type: 
  Country: None (occurrence: None)
  Receive Date: 20120322
  Receipt Date: 20110516
  Transmission Date: 20120608
  Serious: Yes (Other)
  Sender: FDA-Public Use
  Company Number: US-BRISTOL-MYERS SQUIBB COMPANY-15678857

PATIENT
  Age: 53 Year
  Sex: Male

DRUGS (2)
  1. MAGNESIUM [Suspect]
  2. ERBITUX [Suspect]
     Indication: HEAD AND NECK CANCER
     Dosage: 1 DF =4 TREATMENTS  RECEIVED TWO MORE DOSES
     Route: 042

REACTIONS (2)
  - HYPERSENSITIVITY [None]
  - HYPOMAGNESAEMIA [None]
